FAERS Safety Report 18203855 (Version 2)
Quarter: 2020Q4

REPORT INFORMATION
  Report Type: Spontaneous
  Country: US (occurrence: US)
  Receive Date: 20200827
  Receipt Date: 20201009
  Transmission Date: 20210113
  Serious: Yes (Other)
  Sender: FDA-Public Use
  Company Number: US-BAYER-2020-175317

PATIENT
  Age: 30 Year
  Sex: Male

DRUGS (1)
  1. KOGENATE FS [Suspect]
     Active Substance: ANTIHEMOPHILIC FACTOR, HUMAN RECOMBINANT
     Dosage: 3500 U
     Route: 042

REACTIONS (3)
  - Haemarthrosis [None]
  - Haemarthrosis [None]
  - Product dose omission in error [None]

NARRATIVE: CASE EVENT DATE: 20200810
